FAERS Safety Report 23673055 (Version 1)
Quarter: 2024Q1

REPORT INFORMATION
  Report Type: Spontaneous
  Country: KR (occurrence: KR)
  Receive Date: 20240326
  Receipt Date: 20240326
  Transmission Date: 20240410
  Serious: Yes (Hospitalization, Other)
  Sender: FDA-Public Use
  Company Number: KR-MLMSERVICE-20240311-4877120-1

PATIENT
  Age: 35 Year
  Sex: Male
  Weight: 116 kg

DRUGS (4)
  1. QUETIAPINE [Suspect]
     Active Substance: QUETIAPINE
     Indication: Product used for unknown indication
     Route: 048
  2. LITHIUM [Suspect]
     Active Substance: LITHIUM
     Indication: Schizophrenia
     Route: 048
  3. PALIPERIDONE PALMITATE [Suspect]
     Active Substance: PALIPERIDONE PALMITATE
     Indication: Schizophrenia
  4. LORAZEPAM [Concomitant]
     Active Substance: LORAZEPAM
     Indication: Schizophrenia
     Route: 048

REACTIONS (2)
  - Diabetic ketoacidosis [Recovering/Resolving]
  - Pulmonary embolism [Recovered/Resolved]

NARRATIVE: CASE EVENT DATE: 20200101
